FAERS Safety Report 6731313-6 (Version None)
Quarter: 2010Q2

REPORT INFORMATION
  Report Type: 
  Country: None (occurrence: None)
  Receive Date: 20100517
  Receipt Date: 20100517
  Transmission Date: 20101027
  Serious: No
  Sender: FDA-Public Use
  Company Number: None

PATIENT
  Age: 80 Year
  Sex: Male
  Weight: 79.3795 kg

DRUGS (1)
  1. VIAGRA [Suspect]
     Dosage: 1 PILL ONCE PER WEEK PO
     Route: 048
     Dates: start: 20100401, end: 20100413

REACTIONS (2)
  - BRAIN INJURY [None]
  - CEREBROVASCULAR ACCIDENT [None]
